FAERS Safety Report 8395481-5 (Version None)
Quarter: 2012Q2

REPORT INFORMATION
  Report Type: 
  Country: None (occurrence: None)
  Receive Date: 20120530
  Receipt Date: 20111004
  Transmission Date: 20120825
  Serious: No
  Sender: FDA-Public Use
  Company Number: US-GLAXOSMITHKLINE-A0920296A

PATIENT
  Age: 80 Year
  Sex: Female

DRUGS (3)
  1. OXYGEN [Concomitant]
  2. VENTOLIN [Suspect]
     Indication: ASTHMA
     Dosage: 1SPR AS REQUIRED
     Route: 055
     Dates: start: 20101201
  3. ADVAIR DISKUS 100/50 [Suspect]
     Indication: CHRONIC OBSTRUCTIVE PULMONARY DISEASE
     Dosage: 1PUFF PER DAY
     Route: 055

REACTIONS (2)
  - DYSGEUSIA [None]
  - LIP DRY [None]
